FAERS Safety Report 4550764-1 (Version None)
Quarter: 2004Q4

REPORT INFORMATION
  Report Type: 
  Country: None (occurrence: None)
  Receive Date: 20041217
  Receipt Date: 20040916
  Transmission Date: 20050328
  Serious: No
  Sender: FDA-Public Use
  Company Number: 2004-BP-08319BP

PATIENT
  Age: 92 Year
  Sex: Female

DRUGS (13)
  1. SPIRIVA [Suspect]
     Indication: CHRONIC OBSTRUCTIVE AIRWAYS DISEASE
     Dosage: 18 MCG (18 MCG, QD), IH
     Route: 055
     Dates: start: 20040902
  2. SPIRIVA [Suspect]
  3. THEO-24 (THEOPHYLLINE) [Concomitant]
  4. LASIX (LASIX) [Concomitant]
  5. ATENOLOL [Concomitant]
  6. IMDUR [Concomitant]
  7. POTASSIUM [Concomitant]
  8. COUMADIN [Concomitant]
  9. FOSAMAX [Concomitant]
  10. CENTRUM SILVER (CENTRUM SILVER) [Concomitant]
  11. OSCAL (CALCIUM CARBONATE) [Concomitant]
  12. OXYGEN (OXYGEN) [Concomitant]
  13. ALBUTEROL [Concomitant]

REACTIONS (2)
  - DRUG INEFFECTIVE [None]
  - OEDEMA PERIPHERAL [None]
